FAERS Safety Report 14686680 (Version 1)
Quarter: 2018Q1

REPORT INFORMATION
  Report Type: Spontaneous
  Country: US (occurrence: US)
  Receive Date: 20180327
  Receipt Date: 20180327
  Transmission Date: 20180509
  Serious: No
  Sender: FDA-Public Use
  Company Number: US-TARO-2018TAR00187

PATIENT
  Age: 61 Year
  Sex: Female
  Weight: 85.26 kg

DRUGS (3)
  1. METRONIDAZOLE GEL USP, 1% [Suspect]
     Active Substance: METRONIDAZOLE
     Indication: ACNE
     Dosage: UNK UNK, 2X/DAY
     Route: 061
     Dates: start: 201704
  2. METRONIDAZOLE GEL USP, 1% [Suspect]
     Active Substance: METRONIDAZOLE
     Indication: ROSACEA
     Dosage: UNK, 1X/DAY
     Route: 061
  3. LORATADINE. [Concomitant]
     Active Substance: LORATADINE

REACTIONS (4)
  - Off label use [Not Recovered/Not Resolved]
  - Medication residue present [Recovering/Resolving]
  - Application site pain [Recovering/Resolving]
  - Product quality issue [Recovering/Resolving]

NARRATIVE: CASE EVENT DATE: 201704
